FAERS Safety Report 15386335 (Version 2)
Quarter: 2018Q4

REPORT INFORMATION
  Report Type: Spontaneous
  Country: FR (occurrence: FR)
  Receive Date: 20180914
  Receipt Date: 20181010
  Transmission Date: 20190204
  Serious: No
  Sender: FDA-Public Use
  Company Number: FR-EXELIXIS-CABO-18015910

PATIENT
  Age: 60 Year
  Sex: Male
  Weight: 65 kg

DRUGS (7)
  1. XGEVA [Concomitant]
     Active Substance: DENOSUMAB
     Dosage: UNK
  2. CABOMETYX [Suspect]
     Active Substance: CABOZANTINIB S-MALATE
     Indication: CLEAR CELL RENAL CELL CARCINOMA
     Dosage: 40 MG, QD
     Route: 048
     Dates: start: 20180423
  3. SKENAN [Concomitant]
     Active Substance: MORPHINE SULFATE
     Dosage: UNK
  4. BISOPROLOL [Concomitant]
     Active Substance: BISOPROLOL
     Dosage: UNK
  5. LYRICA [Concomitant]
     Active Substance: PREGABALIN
     Dosage: UNK
  6. LEVOTHYROX [Concomitant]
     Active Substance: LEVOTHYROXINE
     Dosage: UNK
  7. LOXEN (NICARDIPINE HYDROCHLORIDE) [Concomitant]
     Active Substance: NICARDIPINE HYDROCHLORIDE
     Dosage: UNK

REACTIONS (2)
  - Adrenal cortex necrosis [Not Recovered/Not Resolved]
  - Adrenal thrombosis [Not Recovered/Not Resolved]

NARRATIVE: CASE EVENT DATE: 20180727
